FAERS Safety Report 11199702 (Version 1)
Quarter: 2015Q2

REPORT INFORMATION
  Report Type: Spontaneous
  Country: US (occurrence: None)
  Receive Date: 20150617
  Receipt Date: 20150617
  Transmission Date: 20150821
  Serious: Yes (Other)
  Sender: FDA-Public Use
  Company Number: None

PATIENT
  Age: 59 Year
  Sex: Female

DRUGS (5)
  1. MELOXICAM. [Concomitant]
     Active Substance: MELOXICAM
  2. SODIUM HYALURONATE [Concomitant]
     Active Substance: HYALURONATE SODIUM
  3. PHOSPHATE [Concomitant]
     Active Substance: UNSPECIFIED INGREDIENT
  4. EXEMESTANE 25 MG [Suspect]
     Active Substance: EXEMESTANE
     Indication: BREAST CANCER
     Route: 048
     Dates: start: 20141125
  5. AFINITOR [Suspect]
     Active Substance: EVEROLIMUS
     Indication: BREAST CANCER
     Route: 048
     Dates: start: 20150108

REACTIONS (3)
  - Peripheral swelling [None]
  - Joint swelling [None]
  - Fluid retention [None]

NARRATIVE: CASE EVENT DATE: 20150530
